FAERS Safety Report 6309205-6 (Version None)
Quarter: 2009Q3

REPORT INFORMATION
  Report Type: 
  Country: None (occurrence: None)
  Receive Date: 20090811
  Receipt Date: 20090731
  Transmission Date: 20100115
  Serious: Yes (Disabling, Other)
  Sender: FDA-Public Use
  Company Number: 2009AP003118

PATIENT
  Age: 61 Year
  Sex: Female

DRUGS (6)
  1. LAMOTRIGINE [Suspect]
     Indication: BIPOLAR DISORDER
     Dosage: 125 MG;BID;PO
     Route: 048
     Dates: start: 20080601, end: 20090301
  2. ATORVASTATIN CALCIUM [Concomitant]
  3. FUROSEMIDE [Concomitant]
  4. METFORMIN HCL [Concomitant]
  5. RAMIPRIL [Concomitant]
  6. ROSIGLITAZONE [Concomitant]

REACTIONS (1)
  - SKIN REACTION [None]
